FAERS Safety Report 6210698-3 (Version None)
Quarter: 2009Q2

REPORT INFORMATION
  Report Type: 
  Country: None (occurrence: None)
  Receive Date: 20090527
  Receipt Date: 20090515
  Transmission Date: 20091009
  Serious: Yes (Hospitalization)
  Sender: FDA-Public Use
  Company Number: CLOF-1000293

PATIENT
  Age: 72 Year
  Sex: Female
  Weight: 48 kg

DRUGS (11)
  1. CLOFARABINE (CLOFARABINE) TABLET [Suspect]
     Indication: MYELODYSPLASTIC SYNDROME
     Dosage: 5 MG/DAY, QD, ORAL
     Route: 048
     Dates: start: 20080908, end: 20080921
  2. PERCOCET [Concomitant]
  3. ZOSYN [Concomitant]
  4. TOBRAMYCIN [Concomitant]
  5. BENADRYL [Concomitant]
  6. TYLENOL [Concomitant]
  7. HYDROCODONE (HYDROCODONE) [Concomitant]
  8. ALLOPURINOL [Concomitant]
  9. COMPAZINE (PROCHLORPERAZINE) MALEATE [Concomitant]
  10. CIPRO [Concomitant]
  11. DOCUSATE (DOCUSATE) [Concomitant]

REACTIONS (29)
  - ACINETOBACTER INFECTION [None]
  - BLOOD CHLORIDE DECREASED [None]
  - BLOOD CREATININE INCREASED [None]
  - BLOOD PRESSURE INCREASED [None]
  - BLOOD SODIUM DECREASED [None]
  - BLOOD UREA INCREASED [None]
  - CHOLELITHIASIS [None]
  - DIARRHOEA [None]
  - DRUG TOXICITY [None]
  - FEBRILE NEUTROPENIA [None]
  - FUNGAL OESOPHAGITIS [None]
  - GASTRIC HAEMORRHAGE [None]
  - GASTRIC ULCER [None]
  - HAEMATOCRIT DECREASED [None]
  - HAEMOGLOBIN DECREASED [None]
  - HEART RATE INCREASED [None]
  - HIATUS HERNIA [None]
  - HYPOKALAEMIA [None]
  - LUNG NEOPLASM [None]
  - OESOPHAGEAL ULCER [None]
  - PERICARDIAL EFFUSION [None]
  - PLEURAL EFFUSION [None]
  - RED BLOOD CELL COUNT DECREASED [None]
  - RENAL DISORDER [None]
  - SPLENIC CYST [None]
  - SPLENOMEGALY [None]
  - THROMBOCYTOPENIA [None]
  - VASCULAR CALCIFICATION [None]
  - WHITE BLOOD CELL COUNT DECREASED [None]
